FAERS Safety Report 8627621 (Version 2)
Quarter: 2014Q1

REPORT INFORMATION
  Report Type: Report from Study
  Country: DE (occurrence: DE)
  Receive Date: 20120621
  Receipt Date: 20140325
  Transmission Date: 20141002
  Serious: Yes (Other)
  Sender: FDA-Public Use
  Company Number: DE-UCBSA-059673

PATIENT
  Sex: Female

DRUGS (2)
  1. CIMZIA [Suspect]
     Indication: RHEUMATOID ARTHRITIS
     Dates: start: 20120402, end: 20120416
  2. ARAVA [Concomitant]
     Indication: RHEUMATOID ARTHRITIS
     Dosage: ONCE IN THE MORNING
     Dates: start: 20111005

REACTIONS (3)
  - Swelling face [Recovered/Resolved]
  - Injection site hypoaesthesia [Recovered/Resolved]
  - Somnolence [Recovered/Resolved]
